FAERS Safety Report 11105368 (Version 2)
Quarter: 2015Q2

REPORT INFORMATION
  Report Type: Report from Study
  Country: CO (occurrence: CO)
  Receive Date: 20150512
  Receipt Date: 20150608
  Transmission Date: 20150821
  Serious: Yes (Hospitalization)
  Sender: FDA-Public Use
  Company Number: CO-ROCHE-1574764

PATIENT
  Age: 44 Year
  Sex: Female

DRUGS (1)
  1. RITUXIMAB [Suspect]
     Active Substance: RITUXIMAB
     Indication: NON-HODGKIN^S LYMPHOMA
     Route: 042
     Dates: start: 20150210

REACTIONS (7)
  - Anaemia [Recovering/Resolving]
  - Hyperglycaemia [Unknown]
  - Anaemia [Recovering/Resolving]
  - Abdominal pain [Recovered/Resolved]
  - Thrombocytopenia [Recovering/Resolving]
  - Pulmonary oedema [Recovered/Resolved]
  - Leukopenia [Recovering/Resolving]

NARRATIVE: CASE EVENT DATE: 201504
